FAERS Safety Report 13266590 (Version 1)
Quarter: 2017Q1

REPORT INFORMATION
  Report Type: Spontaneous
  Country: FR (occurrence: FR)
  Receive Date: 20170223
  Receipt Date: 20170223
  Transmission Date: 20170428
  Serious: Yes (Death)
  Sender: FDA-Public Use
  Company Number: FR-ROCHE-1897615

PATIENT
  Age: 82 Year
  Sex: Female

DRUGS (14)
  1. TRAMADOL. [Concomitant]
     Active Substance: TRAMADOL
     Route: 065
  2. BETAHISTINE [Concomitant]
     Active Substance: BETAHISTINE
     Route: 065
  3. POLARAMINE [Concomitant]
     Active Substance: DEXCHLORPHENIRAMINE MALEATE
     Route: 065
  4. MABTHERA [Suspect]
     Active Substance: RITUXIMAB
     Indication: CENTRAL NERVOUS SYSTEM LYMPHOMA
     Route: 042
     Dates: start: 20160829, end: 20160912
  5. VIMPAT [Concomitant]
     Active Substance: LACOSAMIDE
     Dosage: MORNING AND EVENING
     Route: 065
  6. EUPANTOL [Concomitant]
     Active Substance: PANTOPRAZOLE SODIUM
     Route: 065
  7. METHOTREXATE. [Suspect]
     Active Substance: METHOTREXATE
     Route: 065
     Dates: start: 20160913
  8. METHOTREXATE. [Suspect]
     Active Substance: METHOTREXATE
     Indication: PRODUCT USED FOR UNKNOWN INDICATION
     Route: 065
     Dates: start: 20160830
  9. SERESTA [Concomitant]
     Active Substance: OXAZEPAM
     Dosage: 1 AT NIGHT
     Route: 065
  10. PERFALGAN [Concomitant]
     Active Substance: ACETAMINOPHEN
     Route: 065
  11. SODIUM BICARBONATE. [Concomitant]
     Active Substance: SODIUM BICARBONATE
     Dosage: SODIUM BICARBONATE 1.4%
     Route: 065
  12. AMLOR [Concomitant]
     Active Substance: AMLODIPINE BESYLATE
     Dosage: AT MIDDAY
     Route: 065
  13. BIONOLYTE G5 [Concomitant]
  14. CALCIUM LEVOFOLINATE [Concomitant]
     Active Substance: LEVOLEUCOVORIN CALCIUM
     Dosage: IVD
     Route: 065

REACTIONS (1)
  - Encephalopathy [Fatal]

NARRATIVE: CASE EVENT DATE: 201609
